FAERS Safety Report 9694412 (Version 2)
Quarter: 2014Q1

REPORT INFORMATION
  Report Type: Spontaneous
  Country: US (occurrence: US)
  Receive Date: 20131118
  Receipt Date: 20140127
  Transmission Date: 20141002
  Serious: Yes (Hospitalization)
  Sender: FDA-Public Use
  Company Number: US-UCBSA-103200

PATIENT
  Sex: Male

DRUGS (1)
  1. CIMZIA [Suspect]
     Indication: CROHN^S DISEASE
     Dosage: EXPIRY DATE MAR-2016
     Dates: start: 20081208

REACTIONS (2)
  - Rectal abscess [Not Recovered/Not Resolved]
  - Colonic abscess [Not Recovered/Not Resolved]
